FAERS Safety Report 6997039-9 (Version None)
Quarter: 2010Q3

REPORT INFORMATION
  Report Type: 
  Country: None (occurrence: None)
  Receive Date: 20100918
  Receipt Date: 20090904
  Transmission Date: 20110219
  Serious: No
  Sender: FDA-Public Use
  Company Number: US-WYE-H10901809

PATIENT
  Sex: Female
  Weight: 81.72 kg

DRUGS (1)
  1. PRISTIQ [Suspect]
     Indication: DEPRESSION
     Route: 048
     Dates: start: 20090901, end: 20090903

REACTIONS (4)
  - CHEST PAIN [None]
  - DRY MOUTH [None]
  - HEART RATE INCREASED [None]
  - POLLAKIURIA [None]
